FAERS Safety Report 7495513-2 (Version None)
Quarter: 2011Q2

REPORT INFORMATION
  Report Type: 
  Country: None (occurrence: None)
  Receive Date: 20110523
  Receipt Date: 20110512
  Transmission Date: 20111010
  Serious: Yes (Death, Hospitalization)
  Sender: FDA-Public Use
  Company Number: KR-GENZYME-CERZ-1002061

PATIENT
  Sex: Female
  Weight: 48 kg

DRUGS (1)
  1. CEREZYME [Suspect]
     Indication: GAUCHER'S DISEASE
     Dosage: UNK UNK, UNK
     Route: 042

REACTIONS (7)
  - APNOEA [None]
  - INFECTION [None]
  - CONVULSION [None]
  - RENAL FAILURE [None]
  - NEUROLOGICAL SYMPTOM [None]
  - SEPSIS [None]
  - PNEUMONIA [None]
